FAERS Safety Report 6901813-4 (Version None)
Quarter: 2010Q3

REPORT INFORMATION
  Report Type: 
  Country: None (occurrence: None)
  Receive Date: 20100803
  Receipt Date: 20080312
  Transmission Date: 20110219
  Serious: No
  Sender: FDA-Public Use
  Company Number: US-PFIZER INC-2008023618

PATIENT
  Sex: Male

DRUGS (4)
  1. LYRICA [Suspect]
  2. WELLBUTRIN [Concomitant]
  3. AMITRIPTYLINE HYDROCHLORIDE [Concomitant]
  4. PERCOCET [Concomitant]

REACTIONS (1)
  - PSYCHOMOTOR HYPERACTIVITY [None]
